FAERS Safety Report 11168337 (Version 2)
Quarter: 2015Q2

REPORT INFORMATION
  Report Type: Spontaneous
  Country: US (occurrence: US)
  Receive Date: 20150605
  Receipt Date: 20150615
  Transmission Date: 20150821
  Serious: Yes (Other)
  Sender: FDA-Public Use
  Company Number: US-TEVA-568800USA

PATIENT
  Age: 32 Year
  Sex: Female

DRUGS (1)
  1. PARAGARD T 380A [Suspect]
     Active Substance: COPPER
     Dosage: FORM OF ADM UNKNOWN
     Route: 015
     Dates: start: 20130424, end: 20150512

REACTIONS (1)
  - Pregnancy on contraceptive [Unknown]

NARRATIVE: CASE EVENT DATE: 20150507
